FAERS Safety Report 17131025 (Version 4)
Quarter: 2020Q3

REPORT INFORMATION
  Report Type: Report from Study
  Country: US (occurrence: US)
  Receive Date: 20191209
  Receipt Date: 20200814
  Transmission Date: 20201102
  Serious: Yes (Hospitalization, Other)
  Sender: FDA-Public Use
  Company Number: US-GILEAD-2019-0441394

PATIENT
  Age: 62 Year
  Sex: Female

DRUGS (4)
  1. ZOLEDRONIC ACID [Concomitant]
     Active Substance: ZOLEDRONIC ACID
     Indication: OSTEOPOROSIS
     Dosage: UNKNOWN
     Dates: start: 20191122, end: 20191122
  2. AXICABTAGENE CILOLEUCEL [Suspect]
     Active Substance: AXICABTAGENE CILOLEUCEL
     Indication: NON-HODGKIN^S LYMPHOMA
     Dosage: UNK
     Route: 042
     Dates: start: 20190119, end: 20190119
  3. AXICABTAGENE CILOLEUCEL [Suspect]
     Active Substance: AXICABTAGENE CILOLEUCEL
     Indication: B-CELL TYPE ACUTE LEUKAEMIA
     Dosage: 1 DOSAGE FORM
     Route: 042
     Dates: start: 20180109, end: 20180109
  4. AXICABTAGENE CILOLEUCEL [Suspect]
     Active Substance: AXICABTAGENE CILOLEUCEL
     Dosage: UNK; ALSO ^09?JAN?2019 TO 09?JUN?2019^
     Route: 042
     Dates: start: 20190109, end: 20190109

REACTIONS (15)
  - Confusional state [Recovered/Resolved]
  - Blood count abnormal [Recovered/Resolved]
  - Asthenia [Recovered/Resolved]
  - Nausea [Recovered/Resolved]
  - Bacterial infection [Unknown]
  - Cough [Not Recovered/Not Resolved]
  - Cognitive disorder [Recovered/Resolved]
  - Nasal congestion [Not Recovered/Not Resolved]
  - Poor quality sleep [Recovering/Resolving]
  - Alopecia [Recovered/Resolved]
  - Tonsillectomy [Unknown]
  - Osteoporosis [Not Recovered/Not Resolved]
  - Bacterial infection [Not Recovered/Not Resolved]
  - Yellow skin [Recovered/Resolved]
  - Cytokine release syndrome [Recovered/Resolved]

NARRATIVE: CASE EVENT DATE: 2018
